FAERS Safety Report 10013900 (Version 1)
Quarter: 2014Q1

REPORT INFORMATION
  Report Type: Spontaneous
  Country: US (occurrence: US)
  Receive Date: 20140316
  Receipt Date: 20140316
  Transmission Date: 20141002
  Serious: No
  Sender: FDA-Public Use
  Company Number: US-009507513-1403USA003145

PATIENT
  Sex: Female

DRUGS (2)
  1. NEXPLANON [Suspect]
     Indication: CONTRACEPTION
     Dosage: ONE ROD ONCE
     Route: 059
  2. IMPLANON [Suspect]
     Route: 059

REACTIONS (1)
  - Implant site infection [Unknown]
